FAERS Safety Report 6370115-X (Version None)
Quarter: 2009Q3

REPORT INFORMATION
  Report Type: 
  Country: None (occurrence: None)
  Receive Date: 20090923
  Receipt Date: 20070604
  Transmission Date: 20100115
  Serious: Yes (Hospitalization)
  Sender: FDA-Public Use
  Company Number: US-ASTRAZENECA-2006UW13931

PATIENT
  Age: 46 Year
  Sex: Male
  Weight: 111.1 kg

DRUGS (21)
  1. SEROQUEL [Suspect]
     Indication: SCHIZOPHRENIA
     Route: 048
     Dates: start: 20030101
  2. SEROQUEL [Suspect]
     Indication: INSOMNIA
     Route: 048
     Dates: start: 20030101
  3. SEROQUEL [Suspect]
     Dosage: 100 MG-600 MG
     Route: 048
     Dates: start: 20030414
  4. SEROQUEL [Suspect]
     Dosage: 100 MG-600 MG
     Route: 048
     Dates: start: 20030414
  5. ZYPREXA [Suspect]
     Dates: start: 19980101, end: 20030101
  6. ABILIFY [Concomitant]
     Dates: start: 20030101
  7. GEODON [Concomitant]
     Dates: start: 20020101
  8. RISPERDAL [Concomitant]
     Dates: start: 20030101
  9. PRANDIN [Concomitant]
  10. VYTORIN [Concomitant]
  11. ACTOS [Concomitant]
  12. COZAAR [Concomitant]
  13. LANTUS [Concomitant]
  14. KLONOPIN [Concomitant]
  15. BENZTROPINE MESYLATE [Concomitant]
  16. HYDROCHLOROTHIAZIDE [Concomitant]
  17. GLUCOPHAGE [Concomitant]
  18. AMLODIPINE [Concomitant]
  19. PRAVASTATIN [Concomitant]
  20. ETODOLAC [Concomitant]
  21. TRILEPTAL [Concomitant]

REACTIONS (4)
  - BLOOD CHOLESTEROL INCREASED [None]
  - BLOOD TRIGLYCERIDES INCREASED [None]
  - DIABETES MELLITUS [None]
  - DIABETES MELLITUS INADEQUATE CONTROL [None]
